FAERS Safety Report 5815983-2 (Version None)
Quarter: 2008Q3

REPORT INFORMATION
  Report Type: 
  Country: None (occurrence: None)
  Receive Date: 20080721
  Receipt Date: 20080711
  Transmission Date: 20090109
  Serious: Yes (Other)
  Sender: FDA-Public Use
  Company Number: PHEH2008US06216

PATIENT
  Sex: Female

DRUGS (1)
  1. TRILEPTAL [Suspect]
     Indication: BIPOLAR DISORDER

REACTIONS (7)
  - DIPLOPIA [None]
  - INTENTIONAL OVERDOSE [None]
  - MUSCLE TWITCHING [None]
  - NAUSEA [None]
  - SUICIDAL BEHAVIOUR [None]
  - TREMOR [None]
  - VOMITING [None]
